FAERS Safety Report 4812846-6 (Version None)
Quarter: 2005Q4

REPORT INFORMATION
  Report Type: 
  Country: None (occurrence: None)
  Receive Date: 20051028
  Receipt Date: 20041124
  Transmission Date: 20060501
  Serious: No
  Sender: FDA-Public Use
  Company Number: US-GLAXOSMITHKLINE-A0535169A

PATIENT
  Age: 57 Year
  Sex: Male

DRUGS (9)
  1. ADVAIR DISKUS 100/50 [Suspect]
     Indication: DRUG USE FOR UNKNOWN INDICATION
     Dosage: 1PUFF TWICE PER DAY
     Route: 055
     Dates: start: 20041120, end: 20041122
  2. ALBUTEROL [Concomitant]
  3. ZETIA [Concomitant]
  4. METOPROLOL [Concomitant]
  5. AVANDIA [Concomitant]
  6. EFFEXOR [Concomitant]
  7. LIPITOR [Concomitant]
  8. HYZAAR [Concomitant]
  9. LANTUS [Concomitant]

REACTIONS (3)
  - DRY MOUTH [None]
  - HAEMOPTYSIS [None]
  - PHARYNGOLARYNGEAL PAIN [None]
